FAERS Safety Report 19222288 (Version 1)
Quarter: 2021Q2

REPORT INFORMATION
  Report Type: Spontaneous
  Country: CH (occurrence: CH)
  Receive Date: 20210506
  Receipt Date: 20210506
  Transmission Date: 20210717
  Serious: Yes (Other)
  Sender: FDA-Public Use
  Company Number: CH-JNJFOC-20190727904

PATIENT
  Age: 28 Year
  Sex: Female
  Weight: 31 kg

DRUGS (4)
  1. TREMFYA [Suspect]
     Active Substance: GUSELKUMAB
     Indication: PSORIASIS
     Route: 065
     Dates: start: 20190412
  2. VENLAFAXINE [Concomitant]
     Active Substance: VENLAFAXINE HYDROCHLORIDE
     Indication: DEPRESSION
  3. TREMFYA [Suspect]
     Active Substance: GUSELKUMAB
     Route: 065
     Dates: start: 201911
  4. TREMFYA [Suspect]
     Active Substance: GUSELKUMAB

REACTIONS (5)
  - Herpes zoster [Unknown]
  - Off label use [Unknown]
  - Crohn^s disease [Unknown]
  - Helicobacter test positive [Unknown]
  - Product use issue [Unknown]

NARRATIVE: CASE EVENT DATE: 201904
